FAERS Safety Report 7354858-7 (Version None)
Quarter: 2011Q1

REPORT INFORMATION
  Report Type: 
  Country: None (occurrence: None)
  Receive Date: 20110311
  Receipt Date: 20110311
  Transmission Date: 20110831
  Serious: Yes (Other)
  Sender: FDA-Public Use
  Company Number: None

PATIENT
  Sex: Female
  Weight: 73.4827 kg

DRUGS (1)
  1. ARIMIDEX [Suspect]
     Indication: BREAST CANCER
     Dosage: 1 PO DAILY ORAL
     Route: 048
     Dates: start: 20090701

REACTIONS (2)
  - PRODUCT SUBSTITUTION ISSUE [None]
  - ARTHRALGIA [None]
